FAERS Safety Report 24194813 (Version 1)
Quarter: 2024Q3

REPORT INFORMATION
  Report Type: Spontaneous
  Country: US (occurrence: US)
  Receive Date: 20240809
  Receipt Date: 20240809
  Transmission Date: 20241016
  Serious: Yes (Other)
  Sender: PFIZER
  Company Number: US-PFIZER INC-202400232961

PATIENT
  Age: 54 Year
  Sex: Female

DRUGS (1)
  1. XELJANZ [Suspect]
     Active Substance: TOFACITINIB CITRATE
     Dosage: UNK
     Dates: start: 201902, end: 2021

REACTIONS (8)
  - Elbow operation [Unknown]
  - Foot operation [Unknown]
  - Knee operation [Unknown]
  - Wrist surgery [Unknown]
  - Enthesopathy [Unknown]
  - Sacroiliitis [Unknown]
  - Skin lesion [Unknown]
  - Skin disorder [Unknown]

NARRATIVE: CASE EVENT DATE: 20210101
